FAERS Safety Report 19013506 (Version 2)
Quarter: 2021Q2

REPORT INFORMATION
  Report Type: Report from Study
  Country: US (occurrence: US)
  Receive Date: 20210315
  Receipt Date: 20210513
  Transmission Date: 20210717
  Serious: Yes (Death, Hospitalization, Other)
  Sender: FDA-Public Use
  Company Number: NVSC2020US212051

PATIENT
  Age: 40 Year
  Sex: Female

DRUGS (1)
  1. TREPROSTINIL. [Suspect]
     Active Substance: TREPROSTINIL
     Indication: PULMONARY ARTERIAL HYPERTENSION
     Dosage: UNK (29NG/KG/MIN)
     Route: 042
     Dates: start: 20200507

REACTIONS (11)
  - Cardiac failure [Fatal]
  - Dyspnoea [Fatal]
  - Wheezing [Fatal]
  - Orthopnoea [Fatal]
  - Crepitations [Fatal]
  - Pulmonary arterial hypertension [Fatal]
  - Malaise [Fatal]
  - Ascites [Fatal]
  - Fatigue [Fatal]
  - Oedema peripheral [Fatal]
  - Hypotension [Fatal]

NARRATIVE: CASE EVENT DATE: 202012
